FAERS Safety Report 5281193-3 (Version None)
Quarter: 2007Q1

REPORT INFORMATION
  Report Type: 
  Country: None (occurrence: None)
  Receive Date: 20070323
  Receipt Date: 20070119
  Transmission Date: 20070707
  Serious: Yes (Other)
  Sender: FDA-Public Use
  Company Number: 2007R5-05460

PATIENT
  Age: 48 Year
  Sex: Female
  Weight: 73.5 kg

DRUGS (3)
  1. CEFUROXIME AXETIL [Suspect]
     Indication: SINUSITIS
     Dosage: 500 MG, BID, ORAL
     Route: 048
     Dates: start: 20070115
  2. RANITIDINE [Concomitant]
  3. MODURETIC 5-50 [Concomitant]

REACTIONS (3)
  - BLOOD PRESSURE INCREASED [None]
  - DIARRHOEA [None]
  - HOT FLUSH [None]
